FAERS Safety Report 20196092 (Version 1)
Quarter: 2021Q4

REPORT INFORMATION
  Report Type: Spontaneous
  Country: CN (occurrence: CN)
  Receive Date: 20211216
  Receipt Date: 20211216
  Transmission Date: 20220303
  Serious: Yes (Hospitalization)
  Sender: FDA-Public Use
  Company Number: CN-PFIZER INC-202101741313

PATIENT
  Age: 13 Year
  Sex: Female
  Weight: 41 kg

DRUGS (2)
  1. CYTARABINE [Suspect]
     Active Substance: CYTARABINE
     Indication: Lymphocytic leukaemia
     Dosage: 0.06 G, 2X/DAY
     Route: 041
     Dates: start: 20211024, end: 20211030
  2. CYTARABINE [Suspect]
     Active Substance: CYTARABINE
     Indication: Non-Hodgkin^s lymphoma

REACTIONS (5)
  - Myelosuppression [Recovering/Resolving]
  - Cytopenia [Recovering/Resolving]
  - Anaemia [Unknown]
  - Dizziness [Unknown]
  - Asthenia [Unknown]

NARRATIVE: CASE EVENT DATE: 20211107
